FAERS Safety Report 6816174-9 (Version None)
Quarter: 2010Q3

REPORT INFORMATION
  Report Type: 
  Country: None (occurrence: None)
  Receive Date: 20100705
  Receipt Date: 20100621
  Transmission Date: 20110219
  Serious: Yes (Life-Threatening)
  Sender: FDA-Public Use
  Company Number: GB-RANBAXY-2010RR-35313

PATIENT
  Age: 1 Year
  Weight: 6.8 kg

DRUGS (1)
  1. CODEINE SULFATE [Suspect]

REACTIONS (1)
  - APNOEA [None]
